FAERS Safety Report 10504713 (Version 2)
Quarter: 2014Q4

REPORT INFORMATION
  Report Type: Report from Study
  Country: FR (occurrence: FR)
  Receive Date: 20141008
  Receipt Date: 20141013
  Transmission Date: 20150528
  Serious: Yes (Hospitalization)
  Sender: FDA-Public Use
  Company Number: FR-JNJFOC-20141001444

PATIENT
  Age: 32 Year
  Sex: Male
  Weight: 79 kg

DRUGS (3)
  1. NOZINAN [Concomitant]
     Active Substance: LEVOMEPROMAZINE
     Indication: OEDEMA
     Route: 065
     Dates: start: 20130407
  2. PALIPERIDONE PALMITATE [Suspect]
     Active Substance: PALIPERIDONE PALMITATE
     Indication: SCHIZOPHRENIA
     Route: 030
     Dates: start: 20140307
  3. HALDOL [Concomitant]
     Active Substance: HALOPERIDOL
     Indication: PSYCHOTIC DISORDER
     Route: 065
     Dates: start: 20130407

REACTIONS (2)
  - Anxiety [Recovered/Resolved]
  - Delirium [Recovered/Resolved]

NARRATIVE: CASE EVENT DATE: 20140408
